FAERS Safety Report 9130490 (Version 1)
Quarter: 2013Q1

REPORT INFORMATION
  Report Type: Spontaneous
  Country: US (occurrence: US)
  Receive Date: 20130301
  Receipt Date: 20130301
  Transmission Date: 20140127
  Serious: Yes (Hospitalization)
  Sender: FDA-Public Use
  Company Number: US-BIOGENIDEC-2013BI017741

PATIENT
  Age: 30 Year
  Sex: Female

DRUGS (1)
  1. AVONEX [Suspect]
     Indication: MULTIPLE SCLEROSIS
     Route: 030
     Dates: start: 20110210

REACTIONS (6)
  - Gastric infection [Unknown]
  - Neuritis [Unknown]
  - Balance disorder [Unknown]
  - Cognitive disorder [Unknown]
  - Multiple sclerosis [Unknown]
  - Fall [Recovered/Resolved]
